APPROVED DRUG PRODUCT: BETHKIS
Active Ingredient: TOBRAMYCIN
Strength: 300MG/4ML
Dosage Form/Route: SOLUTION;INHALATION
Application: N201820 | Product #001 | TE Code: AN
Applicant: CHIESI USA INC
Approved: Oct 12, 2012 | RLD: Yes | RS: Yes | Type: RX